FAERS Safety Report 5268961-9 (Version None)
Quarter: 2007Q1

REPORT INFORMATION
  Report Type: 
  Country: None (occurrence: None)
  Receive Date: 20070319
  Receipt Date: 20070309
  Transmission Date: 20070707
  Serious: Yes (Hospitalization)
  Sender: FDA-Public Use
  Company Number: US-BRACCO-BDI-009191

PATIENT
  Sex: Female
  Weight: 55 kg

DRUGS (2)
  1. MULTIHANCE [Suspect]
     Indication: NUCLEAR MAGNETIC RESONANCE IMAGING BRAIN
     Route: 042
     Dates: start: 20070227, end: 20070227
  2. MULTIHANCE [Suspect]
     Indication: TRIGEMINAL NEURALGIA
     Route: 042
     Dates: start: 20070227, end: 20070227

REACTIONS (2)
  - HYPERSENSITIVITY [None]
  - TROPONIN INCREASED [None]
